FAERS Safety Report 16229921 (Version 9)
Quarter: 2021Q4

REPORT INFORMATION
  Report Type: Spontaneous
  Country: US (occurrence: US)
  Receive Date: 20190423
  Receipt Date: 20211118
  Transmission Date: 20220303
  Serious: Yes (Hospitalization)
  Sender: FDA-Public Use
  Company Number: US-PFIZER INC-2019169627

PATIENT
  Age: 48 Year
  Sex: Female

DRUGS (3)
  1. LYRICA [Suspect]
     Active Substance: PREGABALIN
     Indication: Radiculopathy
     Dosage: 75 MG, 3X/DAY
     Route: 048
  2. LYRICA [Suspect]
     Active Substance: PREGABALIN
     Indication: Spinal osteoarthritis
     Dosage: 200 MG, 3X/DAY(1 CAPSULE EVERY 8 HRS 30 DAY(S))
     Route: 048
  3. LYRICA [Suspect]
     Active Substance: PREGABALIN
     Indication: Lumbar radiculopathy
     Dosage: 200 MG, 2X/DAY(1 CAPSULE 1 TO 3 HOURS BEFORE BEDTIME TWICE A DAY 30 DAY(S))
     Route: 048

REACTIONS (2)
  - Illness [Unknown]
  - Drug hypersensitivity [Unknown]
